FAERS Safety Report 10334092 (Version 1)
Quarter: 2014Q3

REPORT INFORMATION
  Report Type: Spontaneous
  Country: US (occurrence: None)
  Receive Date: 20140721
  Receipt Date: 20140721
  Transmission Date: 20150326
  Serious: Yes (Hospitalization)
  Sender: FDA-Public Use
  Company Number: None

PATIENT
  Age: 49 Year
  Sex: Male
  Weight: 74.84 kg

DRUGS (2)
  1. DULERA [Suspect]
     Active Substance: FORMOTEROL FUMARATE DIHYDRATE\MOMETASONE FUROATE
     Indication: ASTHMA
     Dosage: 1 PUFF
     Route: 055
     Dates: start: 20140709, end: 20140716
  2. DULERA [Suspect]
     Active Substance: FORMOTEROL FUMARATE DIHYDRATE\MOMETASONE FUROATE
     Indication: ASTHMA
     Route: 055
     Dates: start: 20140717, end: 20140719

REACTIONS (16)
  - Anxiety [None]
  - Arthralgia [None]
  - Device malfunction [None]
  - Feeling abnormal [None]
  - Nervousness [None]
  - Dysphagia [None]
  - Musculoskeletal stiffness [None]
  - Palpitations [None]
  - Chest discomfort [None]
  - Cold sweat [None]
  - Tremor [None]
  - Feeling jittery [None]
  - Dysphonia [None]
  - Pain in extremity [None]
  - Neck pain [None]
  - Headache [None]

NARRATIVE: CASE EVENT DATE: 20140716
